FAERS Safety Report 24548215 (Version 1)
Quarter: 2024Q4

REPORT INFORMATION
  Report Type: Spontaneous
  Country: PL (occurrence: PL)
  Receive Date: 20241025
  Receipt Date: 20241025
  Transmission Date: 20250115
  Serious: Yes (Hospitalization, Other)
  Sender: CELLTRION
  Company Number: PL-ADIENNEP-2024AD000356

PATIENT

DRUGS (7)
  1. RITUXIMAB [Suspect]
     Active Substance: RITUXIMAB
     Indication: Prophylaxis
     Dosage: ON DAY +5
  2. THIOTEPA [Suspect]
     Active Substance: THIOTEPA
     Indication: Allogenic stem cell transplantation
     Dosage: 10 MG/KG/DAY, DAY -2
  3. BUSULFAN [Suspect]
     Active Substance: BUSULFAN
     Indication: Allogenic stem cell transplantation
     Dosage: 3.2 MG/KG/DAY, DAYS -7 TO -4
  4. FLUDARABINE [Suspect]
     Active Substance: FLUDARABINE PHOSPHATE
     Indication: Allogenic stem cell transplantation
     Dosage: 30 MG/M2/DAY, DAYS -7 TO -3
  5. MYCOPHENOLATE MOFETIL [Suspect]
     Active Substance: MYCOPHENOLATE MOFETIL
     Indication: Prophylaxis against graft versus host disease
     Dosage: SINCE DAY +1
  6. CYCLOPHOSPHAMIDE [Suspect]
     Active Substance: CYCLOPHOSPHAMIDE
     Indication: Prophylaxis against graft versus host disease
     Dosage: 50 MG/KG/DAY, DAYS +3, +5
  7. CYCLOSPORINE [Suspect]
     Active Substance: CYCLOSPORINE
     Indication: Prophylaxis against graft versus host disease
     Dosage: SINCE DAY +5

REACTIONS (14)
  - Graft versus host disease [Recovered/Resolved]
  - Gastrointestinal inflammation [Unknown]
  - Acute graft versus host disease in skin [Recovered/Resolved]
  - Acute graft versus host disease in intestine [Recovered/Resolved]
  - Pyrexia [Unknown]
  - Klebsiella infection [Not Recovered/Not Resolved]
  - Klebsiella sepsis [Recovered/Resolved]
  - Urinary tract infection [Recovered/Resolved]
  - Epididymitis [Unknown]
  - Klebsiella urinary tract infection [Unknown]
  - Gastrointestinal bacterial infection [Not Recovered/Not Resolved]
  - Enterococcal infection [Unknown]
  - Bacterial infection [Unknown]
  - Intentional product use issue [Unknown]
